FAERS Safety Report 5455762-1 (Version None)
Quarter: 2007Q3

REPORT INFORMATION
  Report Type: 
  Country: None (occurrence: None)
  Receive Date: 20070918
  Receipt Date: 20070702
  Transmission Date: 20080115
  Serious: Yes (Hospitalization)
  Sender: FDA-Public Use
  Company Number: US-ASTRAZENECA-2006UW22653

PATIENT
  Age: 17973 Day
  Sex: Female
  Weight: 104.5 kg

DRUGS (3)
  1. SEROQUEL [Suspect]
     Route: 048
  2. GEODON [Concomitant]
     Dates: start: 20060101
  3. ZYPREXA [Concomitant]
     Dates: start: 20050101, end: 20060101

REACTIONS (2)
  - DIABETES MELLITUS [None]
  - PNEUMONIA [None]
